FAERS Safety Report 18356188 (Version 1)
Quarter: 2020Q4

REPORT INFORMATION
  Report Type: Spontaneous
  Country: AT (occurrence: AT)
  Receive Date: 20201007
  Receipt Date: 20201007
  Transmission Date: 20210114
  Serious: Yes (Other)
  Sender: FDA-Public Use
  Company Number: AT-ASTRAZENECA-2020SF18621

PATIENT
  Sex: Female

DRUGS (1)
  1. SEROQUEL [Suspect]
     Active Substance: QUETIAPINE FUMARATE
     Indication: PROPHYLAXIS
     Dosage: 100.0MG UNKNOWN
     Route: 048
     Dates: start: 20170310

REACTIONS (6)
  - Fatigue [Unknown]
  - Deafness [Unknown]
  - Dry eye [Unknown]
  - Dizziness [Unknown]
  - Syncope [Unknown]
  - Dry mouth [Unknown]
